FAERS Safety Report 8825928 (Version 2)
Quarter: 2012Q4

REPORT INFORMATION
  Report Type: 
  Country: JP (occurrence: JP)
  Receive Date: 20121005
  Receipt Date: 20121108
  Transmission Date: 20130627
  Serious: Yes (Hospitalization, Disabling)
  Sender: FDA-Public Use
  Company Number: JP-AMGEN-JPNCT2012063297

PATIENT
  Age: 62 Year
  Sex: Male
  Weight: 60 kg

DRUGS (21)
  1. ROMIPLOSTIM - KHK [Suspect]
     Indication: IDIOPATHIC THROMBOCYTOPENIC PURPURA
     Dosage: 1 mug/kg, qwk
     Route: 058
     Dates: start: 20120302
  2. ROMIPLOSTIM - KHK [Suspect]
     Dosage: 1 mug/kg, qwk
     Route: 058
     Dates: start: 20120413, end: 20120502
  3. ROMIPLOSTIM - KHK [Suspect]
     Dosage: 2 mug/kg, qd
     Route: 058
     Dates: start: 20120511, end: 20120511
  4. ROMIPLOSTIM - KHK [Suspect]
     Dosage: 3 mug/kg, qd
     Route: 058
     Dates: start: 20120518, end: 20120518
  5. ROMIPLOSTIM - KHK [Suspect]
     Dosage: 4 mug/kg, qd
     Route: 058
     Dates: start: 20120525, end: 20120525
  6. ROMIPLOSTIM - KHK [Suspect]
     Dosage: 5 mug/kg, qd
     Route: 058
     Dates: start: 20120601, end: 20120601
  7. ROMIPLOSTIM - KHK [Suspect]
     Dosage: 6 mug/kg, qd
     Route: 058
     Dates: start: 20120608, end: 20120608
  8. ROMIPLOSTIM - KHK [Suspect]
     Dosage: 7 mug/kg, qd
     Route: 058
     Dates: start: 20120615, end: 20120615
  9. ROMIPLOSTIM - KHK [Suspect]
     Dosage: 8 mug/kg, qd
     Route: 058
     Dates: start: 20120622, end: 20120622
  10. ROMIPLOSTIM - KHK [Suspect]
     Dosage: 9 mug/kg, qwk
     Route: 058
     Dates: start: 20120629, end: 20120706
  11. ROMIPLOSTIM - KHK [Suspect]
     Dosage: 10 mug/kg, qwk
     Route: 058
     Dates: start: 20120713
  12. GLIMEPIRIDE [Concomitant]
     Indication: DIABETES MELLITUS
     Dosage: UNK
     Route: 048
  13. OMERAP [Concomitant]
     Indication: GASTRIC ULCER
     Dosage: UNK
     Route: 048
  14. FUROSEMIDE [Concomitant]
     Indication: CARDIAC FAILURE
     Dosage: Dosage is uncertain.
     Route: 065
  15. MECOBALAMIN [Concomitant]
     Indication: NEUROPATHY PERIPHERAL
     Dosage: UNK
     Route: 065
  16. AUZEI [Concomitant]
     Indication: PROPHYLAXIS
     Dosage: UNK
     Route: 065
  17. TRANSAMIN [Concomitant]
     Indication: PROPHYLAXIS
     Dosage: UNK
     Route: 065
  18. ALDACTONE A [Concomitant]
     Indication: HEPATIC CIRRHOSIS
     Dosage: UNK
     Route: 048
  19. RENIVEZE [Concomitant]
     Indication: HYPERTENSION
     Dosage: UNK
     Route: 048
  20. DIOVAN [Concomitant]
     Indication: HYPERTENSION
     Dosage: UNK
     Route: 048
  21. ARGAMATE [Concomitant]
     Indication: HYPERKALAEMIA
     Dosage: UNK

REACTIONS (1)
  - Arrhythmia [Recovered/Resolved with Sequelae]
